FAERS Safety Report 7181121-X (Version None)
Quarter: 2010Q4

REPORT INFORMATION
  Report Type: 
  Country: None (occurrence: None)
  Receive Date: 20101221
  Receipt Date: 20100419
  Transmission Date: 20110411
  Serious: No
  Sender: FDA-Public Use
  Company Number: US-AMGEN-KDL407043

PATIENT

DRUGS (4)
  1. ENBREL [Suspect]
     Indication: PRODUCT USED FOR UNKNOWN INDICATION
     Dosage: 50 MG, 2 TIMES/WK
     Route: 058
  2. DESVENLAFAXINE [Concomitant]
     Dosage: 50 MG, UNK
     Route: 048
  3. IBUPROFEN [Concomitant]
     Dosage: 800 MG, UNK
     Route: 048
  4. RABEPRAZOLE SODIUM [Concomitant]
     Dosage: 20 MG, UNK
     Route: 048

REACTIONS (1)
  - STOMATITIS [None]
